FAERS Safety Report 7812588-9 (Version None)
Quarter: 2011Q4

REPORT INFORMATION
  Report Type: 
  Country: None (occurrence: None)
  Receive Date: 20111011
  Receipt Date: 20111004
  Transmission Date: 20120403
  Serious: Yes (Hospitalization, Other)
  Sender: FDA-Public Use
  Company Number: 201111112

PATIENT
  Sex: Male

DRUGS (1)
  1. LIORESAL [Suspect]
     Indication: MUSCLE SPASTICITY
     Dosage: 100 MCG, DAILY, INTRATHECAL
     Route: 037

REACTIONS (6)
  - OVERDOSE [None]
  - IMPLANT SITE EFFUSION [None]
  - MUSCULOSKELETAL DISORDER [None]
  - NO THERAPEUTIC RESPONSE [None]
  - MEDICAL DEVICE COMPLICATION [None]
  - SEROMA [None]
